FAERS Safety Report 7400636-X (Version None)
Quarter: 2011Q1

REPORT INFORMATION
  Report Type: 
  Country: None (occurrence: None)
  Receive Date: 20110329
  Receipt Date: 20110314
  Transmission Date: 20110831
  Serious: Yes (Other)
  Sender: FDA-Public Use
  Company Number: B0707072A

PATIENT

DRUGS (2)
  1. DEXAMETHASONE [Suspect]
     Indication: MALIGNANT NERVOUS SYSTEM NEOPLASM
  2. LAPATINIB [Suspect]
     Indication: MALIGNANT NERVOUS SYSTEM NEOPLASM
     Dosage: 520 MG/M2 TWICE PER DAY, ORAL
     Route: 048

REACTIONS (3)
  - DRUG INTERACTION [None]
  - TOXICITY TO VARIOUS AGENTS [None]
  - RASH [None]
